FAERS Safety Report 5205067-9 (Version None)
Quarter: 2007Q1

REPORT INFORMATION
  Report Type: 
  Country: None (occurrence: None)
  Receive Date: 20070110
  Receipt Date: 20061018
  Transmission Date: 20070707
  Serious: No
  Sender: FDA-Public Use
  Company Number: US-BRISTOL-MYERS SQUIBB COMPANY-13545991

PATIENT
  Age: 58 Year

DRUGS (1)
  1. ABILIFY [Suspect]
     Dates: start: 20060901

REACTIONS (2)
  - BLOOD SODIUM DECREASED [None]
  - POLYDIPSIA [None]
